FAERS Safety Report 18379998 (Version 4)
Quarter: 2021Q1

REPORT INFORMATION
  Report Type: Report from Study
  Country: None (occurrence: US)
  Receive Date: 20201014
  Receipt Date: 20210304
  Transmission Date: 20210419
  Serious: Yes (Hospitalization, Other)
  Sender: FDA-Public Use
  Company Number: US-ABBVIE-20K-163-3603999-00

PATIENT
  Age: 46 Year
  Sex: Female
  Weight: 70.37 kg

DRUGS (12)
  1. VITAMIN B COMPLEX [Concomitant]
     Active Substance: CYANOCOBALAMIN\DEXPANTHENOL\NIACINAMIDE\PYRIDOXINE HYDROCHLORIDE\RIBOFLAVIN 5^-PHOSPHATE SODIUM\THIAMINE HYDROCHLORIDE\VITAMIN B COMPLEX
     Indication: PRODUCT USED FOR UNKNOWN INDICATION
  2. ZOFRAN [Concomitant]
     Active Substance: ONDANSETRON HYDROCHLORIDE
     Indication: NAUSEA
  3. OMEGA 3 [Concomitant]
     Active Substance: OMEGA-3 FATTY ACIDS
     Indication: PRODUCT USED FOR UNKNOWN INDICATION
  4. PROMETHAZINE [Concomitant]
     Active Substance: PROMETHAZINE HYDROCHLORIDE
     Indication: VOMITING
  5. LACTULOSE. [Concomitant]
     Active Substance: LACTULOSE
     Indication: GASTROINTESTINAL DISORDER
  6. VITAMIN C [Concomitant]
     Active Substance: ASCORBIC ACID
     Indication: PRODUCT USED FOR UNKNOWN INDICATION
  7. ZOFRAN [Concomitant]
     Active Substance: ONDANSETRON HYDROCHLORIDE
     Indication: VOMITING
  8. PROBIOTIC ENZYMES [Concomitant]
     Indication: PRODUCT USED FOR UNKNOWN INDICATION
  9. CREON [Suspect]
     Active Substance: PANCRELIPASE AMYLASE\PANCRELIPASE LIPASE\PANCRELIPASE PROTEASE
     Indication: PANCREATITIS CHRONIC
     Dosage: 2 CAPSULES TWICE A DAY?2 CAPSULES PER MEAL ON MORNING AND EVENING
     Route: 048
     Dates: start: 2018
  10. METOPROLOL. [Concomitant]
     Active Substance: METOPROLOL
     Indication: HYPERTENSION
  11. PROMETHAZINE [Concomitant]
     Active Substance: PROMETHAZINE HYDROCHLORIDE
     Indication: NAUSEA
  12. CREON [Suspect]
     Active Substance: PANCRELIPASE AMYLASE\PANCRELIPASE LIPASE\PANCRELIPASE PROTEASE
     Indication: PANCREATIC ENLARGEMENT

REACTIONS (24)
  - Platelet count decreased [Recovering/Resolving]
  - Asthenia [Recovering/Resolving]
  - Muscle spasms [Recovering/Resolving]
  - Anxiety [Not Recovered/Not Resolved]
  - Back pain [Not Recovered/Not Resolved]
  - Decreased appetite [Recovering/Resolving]
  - Sputum discoloured [Recovered/Resolved]
  - Pulmonary oedema [Recovered/Resolved]
  - Weight decreased [Recovering/Resolving]
  - Constipation [Recovered/Resolved]
  - Productive cough [Recovered/Resolved]
  - Cerebrovascular accident [Recovering/Resolving]
  - Cyst [Recovering/Resolving]
  - International normalised ratio abnormal [Recovering/Resolving]
  - Insomnia [Not Recovered/Not Resolved]
  - Wheezing [Recovered/Resolved]
  - Diarrhoea [Recovered/Resolved]
  - Oedema [Recovering/Resolving]
  - Blood potassium decreased [Recovering/Resolving]
  - Ageusia [Recovering/Resolving]
  - Disorientation [Recovered/Resolved]
  - Rotator cuff syndrome [Not Recovered/Not Resolved]
  - Fall [Recovered/Resolved]
  - Headache [Recovered/Resolved]

NARRATIVE: CASE EVENT DATE: 202009
